FAERS Safety Report 24813193 (Version 1)
Quarter: 2025Q1

REPORT INFORMATION
  Report Type: Spontaneous
  Country: FR (occurrence: FR)
  Receive Date: 20250107
  Receipt Date: 20250107
  Transmission Date: 20250409
  Serious: Yes (Death)
  Sender: JOHNSON AND JOHNSON
  Company Number: FR-JNJFOC-20241289829

PATIENT
  Age: 57 Year
  Sex: Male
  Weight: 69 kg

DRUGS (2)
  1. TECVAYLI [Suspect]
     Active Substance: TECLISTAMAB-CQYV
     Indication: Plasma cell myeloma
     Dates: start: 20240703
  2. TECVAYLI [Suspect]
     Active Substance: TECLISTAMAB-CQYV
     Dates: end: 20240919

REACTIONS (2)
  - Adverse reaction [Fatal]
  - Off label use [Unknown]
